FAERS Safety Report 13500584 (Version 1)
Quarter: 2017Q2

REPORT INFORMATION
  Report Type: Spontaneous
  Country: CN (occurrence: CN)
  Receive Date: 20170501
  Receipt Date: 20170501
  Transmission Date: 20170830
  Serious: Yes (Other)
  Sender: FDA-Public Use
  Company Number: CN-PFIZER INC-2017181975

PATIENT
  Age: 24 Year
  Sex: Female

DRUGS (5)
  1. ZOLOFT [Suspect]
     Active Substance: SERTRALINE HYDROCHLORIDE
     Indication: EMOTIONAL DISORDER
     Dosage: 0.25 DF, 1X/DAY
     Route: 048
     Dates: start: 2004
  2. ZOLOFT [Suspect]
     Active Substance: SERTRALINE HYDROCHLORIDE
     Dosage: 2 DF, 1X/DAY
     Route: 048
  3. ZOLOFT [Suspect]
     Active Substance: SERTRALINE HYDROCHLORIDE
     Dosage: 0.75 DF, 1X/DAY
     Route: 048
  4. ZOLOFT [Suspect]
     Active Substance: SERTRALINE HYDROCHLORIDE
     Dosage: 1 DF, 1X/DAY
     Route: 048
     Dates: start: 201610
  5. ZOLOFT [Suspect]
     Active Substance: SERTRALINE HYDROCHLORIDE
     Dosage: 0.5 DF, 1X/DAY
     Route: 048

REACTIONS (5)
  - Pyrexia [Not Recovered/Not Resolved]
  - Oligomenorrhoea [Not Recovered/Not Resolved]
  - Hyperhidrosis [Not Recovered/Not Resolved]
  - Nervousness [Unknown]
  - Arrhythmia [Unknown]

NARRATIVE: CASE EVENT DATE: 2004
